FAERS Safety Report 4690422-6 (Version None)
Quarter: 2005Q2

REPORT INFORMATION
  Report Type: 
  Country: None (occurrence: None)
  Receive Date: 20050615
  Receipt Date: 20050516
  Transmission Date: 20051028
  Serious: Yes (Hospitalization)
  Sender: FDA-Public Use
  Company Number: 2005UW07715

PATIENT
  Age: 62 Year
  Sex: Male

DRUGS (7)
  1. CRESTOR [Suspect]
     Route: 048
     Dates: start: 20041019, end: 20050413
  2. CRESTOR [Suspect]
     Route: 048
     Dates: start: 20050413, end: 20050501
  3. CRESTOR [Suspect]
     Route: 048
     Dates: start: 20050501
  4. ALLOPURINOL [Concomitant]
  5. HYDROCHLOROTHIAZIDE [Concomitant]
  6. TIAZAC [Concomitant]
  7. NITROGLYCERIN SPRAY [Concomitant]

REACTIONS (1)
  - MYOCARDIAL INFARCTION [None]
